FAERS Safety Report 8954277 (Version 1)
Quarter: 2012Q4

REPORT INFORMATION
  Report Type: 
  Country: US (occurrence: US)
  Receive Date: 20121207
  Receipt Date: 20121207
  Transmission Date: 20130627
  Serious: Yes (Hospitalization)
  Sender: FDA-Public Use
  Company Number: US-VERTEX PHARMACEUTICALS INC.-AE-2012-000910

PATIENT
  Age: 44 Year
  Sex: Female

DRUGS (13)
  1. VX-950 (TELAPREVIR) [Suspect]
     Indication: HEPATITIS C
     Dosage: 750 mg, tid
     Route: 048
     Dates: start: 20111216
  2. PEGASYS [Concomitant]
     Indication: HEPATITIS C
     Dosage: 180 ?g, qw
     Dates: start: 20111216
  3. RIBAVIRIN [Concomitant]
     Indication: HEPATITIS C
     Dosage: 600 mg, bid
     Dates: start: 20111216
  4. RIBAVIRIN [Concomitant]
     Dosage: 600 mg am, 400 mg pm
  5. SINGULAIR [Concomitant]
     Dosage: 10 mg, UNK
  6. PROTONIX [Concomitant]
     Dosage: 40 mg, UNK
  7. ZOLOFT [Concomitant]
     Dosage: 100 mg, UNK
  8. ZYRTEC [Concomitant]
     Dosage: 10 mg, UNK
  9. FLONASE SP R [Concomitant]
     Dosage: 0.05 %, UNK
  10. IMITREX                            /01044801/ [Concomitant]
     Dosage: 100 mg, UNK
  11. SPIRONOLACT [Concomitant]
     Dosage: 50 mg, UNK
  12. MULTIVITAMIN                       /00097801/ [Concomitant]
  13. ACTIGALL [Concomitant]
     Dosage: 300 mg, UNK

REACTIONS (7)
  - Pneumonia [Unknown]
  - White blood cell count decreased [Unknown]
  - Oedema peripheral [Unknown]
  - Anaemia [Unknown]
  - Haemorrhoids [Unknown]
  - Proctalgia [Unknown]
  - Pruritus [Unknown]
